FAERS Safety Report 24434634 (Version 1)
Quarter: 2024Q4

REPORT INFORMATION
  Report Type: Spontaneous
  Country: GB (occurrence: GB)
  Receive Date: 20241014
  Receipt Date: 20241014
  Transmission Date: 20250115
  Serious: Yes (Other)
  Sender: ABBVIE
  Company Number: GB-ABBVIE-5955012

PATIENT
  Sex: Female

DRUGS (1)
  1. PRED FORTE [Suspect]
     Active Substance: PREDNISOLONE ACETATE
     Indication: Product used for unknown indication
     Dosage: TIME INTERVAL: 0.125 DAYS: FOR THREE WEEKS, FORM STRENGTH: 10.5 MG/ML
     Route: 047

REACTIONS (4)
  - Blindness [Unknown]
  - Vision blurred [Unknown]
  - Eyelid ptosis [Unknown]
  - Eye disorder [Unknown]
